FAERS Safety Report 9711700 (Version 1)
Quarter: 2013Q4

REPORT INFORMATION
  Report Type: Spontaneous
  Country: US (occurrence: US)
  Receive Date: 20131126
  Receipt Date: 20131126
  Transmission Date: 20140711
  Serious: No
  Sender: FDA-Public Use
  Company Number: US-009507513-1311USA005559

PATIENT
  Sex: Female

DRUGS (3)
  1. ZOCOR [Suspect]
     Route: 048
  2. LASIX (FUROSEMIDE SODIUM) [Suspect]
  3. NIACIN [Suspect]

REACTIONS (2)
  - Rash generalised [Recovered/Resolved]
  - Pruritus [Recovered/Resolved]
